FAERS Safety Report 8115421-3 (Version None)
Quarter: 2012Q1

REPORT INFORMATION
  Report Type: 
  Country: None (occurrence: None)
  Receive Date: 20120206
  Receipt Date: 20120124
  Transmission Date: 20120608
  Serious: Yes (Hospitalization)
  Sender: FDA-Public Use
  Company Number: DE-ELI_LILLY_AND_COMPANY-DE201201006788

PATIENT
  Age: 75 Year
  Sex: Female

DRUGS (4)
  1. CYMBALTA [Suspect]
     Indication: DEPRESSION
     Dosage: 30 MG, UNKNOWN
     Route: 048
  2. PANTOPRAZOLE [Concomitant]
  3. ALENDRONIC ACID [Concomitant]
  4. CALCIUM [Concomitant]

REACTIONS (6)
  - GASTROINTESTINAL DISORDER [None]
  - DYSPNOEA [None]
  - NAUSEA [None]
  - ABDOMINAL PAIN UPPER [None]
  - DIARRHOEA [None]
  - MALAISE [None]
